FAERS Safety Report 4583807-X (Version None)
Quarter: 2005Q1

REPORT INFORMATION
  Report Type: 
  Country: None (occurrence: None)
  Receive Date: 20050211
  Receipt Date: 20041223
  Transmission Date: 20050727
  Serious: Yes (Death, Hospitalization)
  Sender: FDA-Public Use
  Company Number: F (LIT) 07/0105

PATIENT
  Age: 67 Year
  Sex: Male

DRUGS (2)
  1. SPIRONOLACTONE [Suspect]
     Indication: CARDIAC FAILURE
     Dosage: 25 MG DAILY ORAL
     Route: 048
  2. ENALAPRIL MALEATE [Suspect]
     Dosage: 20 MG DAILY ORAL
     Route: 048

REACTIONS (7)
  - BLOOD CREATININE INCREASED [None]
  - CARDIAC ARREST [None]
  - CARDIAC FAILURE CONGESTIVE [None]
  - GLOMERULAR FILTRATION RATE DECREASED [None]
  - HEART RATE DECREASED [None]
  - HYPERKALAEMIA [None]
  - MEDICATION ERROR [None]
